FAERS Safety Report 7142084-6 (Version None)
Quarter: 2010Q4

REPORT INFORMATION
  Report Type: 
  Country: None (occurrence: None)
  Receive Date: 20101207
  Receipt Date: 20101202
  Transmission Date: 20110411
  Serious: Yes (Other)
  Sender: FDA-Public Use
  Company Number: NL-PFIZER INC-2006101253

PATIENT
  Age: 20 Year
  Sex: Male

DRUGS (7)
  1. IBUPROFEN [Suspect]
     Indication: PRODUCT USED FOR UNKNOWN INDICATION
     Dosage: 12-400 MG TABLETS
     Route: 048
  2. IBUPROFEN [Suspect]
     Dosage: 4800 MG, 1 IN 1 TOTAL
     Route: 048
  3. PARACETAMOL [Suspect]
     Dosage: 26-500 MG TABLETS
     Route: 048
  4. PARACETAMOL [Suspect]
     Dosage: 13000 MG, 1 IN 1 TOTAL
     Route: 048
  5. DILAZEP DIHYDROCHLORIDE [Suspect]
     Indication: PRODUCT USED FOR UNKNOWN INDICATION
     Dosage: 8-5 MG TABLETS
     Route: 048
  6. METHYLPHENIDATE [Suspect]
     Indication: PRODUCT USED FOR UNKNOWN INDICATION
     Dosage: 28 DOSE(S), 1 IN 1 TOTAL
     Route: 048
  7. ALCOHOL [Suspect]
     Indication: PRODUCT USED FOR UNKNOWN INDICATION
     Dosage: 6-8 UNITS
     Route: 048

REACTIONS (2)
  - DYSARTHRIA [None]
  - MULTIPLE DRUG OVERDOSE INTENTIONAL [None]
